FAERS Safety Report 6496064-4 (Version None)
Quarter: 2009Q4

REPORT INFORMATION
  Report Type: 
  Country: None (occurrence: None)
  Receive Date: 20091214
  Receipt Date: 20090923
  Transmission Date: 20100525
  Serious: No
  Sender: FDA-Public Use
  Company Number: US-BRISTOL-MYERS SQUIBB COMPANY-14789945

PATIENT
  Age: 41 Year
  Sex: Female

DRUGS (4)
  1. ABILIFY [Suspect]
     Indication: BIPOLAR II DISORDER
     Dosage: INCREASED TO 30 MG
     Dates: start: 20090101
  2. XANAX [Concomitant]
  3. LAMICTAL [Concomitant]
  4. EFFEXOR XR [Concomitant]

REACTIONS (1)
  - DYSKINESIA [None]
